FAERS Safety Report 5492625-X (Version None)
Quarter: 2007Q4

REPORT INFORMATION
  Report Type: 
  Country: None (occurrence: None)
  Receive Date: 20071022
  Receipt Date: 20071012
  Transmission Date: 20080405
  Serious: Yes (Hospitalization)
  Sender: FDA-Public Use
  Company Number: JP-BAXTER-2006BH013321

PATIENT
  Age: 30 Year
  Sex: Male
  Weight: 69 kg

DRUGS (13)
  1. RECOMBINATE [Suspect]
     Indication: FACTOR VIII DEFICIENCY
     Route: 042
     Dates: start: 20050218, end: 20050218
  2. RECOMBINATE [Suspect]
     Route: 042
     Dates: start: 20060827, end: 20060827
  3. RECOMBINATE [Suspect]
     Route: 042
     Dates: start: 20060828, end: 20060828
  4. RECOMBINATE [Suspect]
     Route: 042
     Dates: start: 20050218, end: 20050218
  5. RECOMBINATE [Suspect]
     Route: 042
     Dates: start: 20050219, end: 20050223
  6. RECOMBINATE [Suspect]
     Route: 042
     Dates: start: 20060828, end: 20060828
  7. RECOMBINATE [Suspect]
     Route: 042
     Dates: start: 20050219, end: 20050223
  8. RECOMBINATE [Suspect]
     Route: 042
     Dates: start: 20050224, end: 20050228
  9. RECOMBINATE [Suspect]
     Route: 042
     Dates: start: 20060829, end: 20060829
  10. RECOMBINATE [Suspect]
     Route: 042
     Dates: start: 20050301
  11. RECOMBINATE [Suspect]
     Route: 042
     Dates: start: 20060830, end: 20060831
  12. RECOMBINATE [Suspect]
     Route: 042
     Dates: start: 20060901, end: 20060901
  13. RECOMBINATE [Suspect]
     Route: 042
     Dates: start: 20060901, end: 20060901

REACTIONS (2)
  - DRUG INEFFECTIVE [None]
  - FACTOR VIII INHIBITION [None]
